FAERS Safety Report 10169942 (Version 2)
Quarter: 2014Q2

REPORT INFORMATION
  Report Type: Spontaneous
  Country: US (occurrence: US)
  Receive Date: 20140513
  Receipt Date: 20140624
  Transmission Date: 20141212
  Serious: Yes (Other)
  Sender: FDA-Public Use
  Company Number: US-PFIZER INC-2014129683

PATIENT
  Age: 55 Year
  Sex: Male
  Weight: 95.24 kg

DRUGS (3)
  1. VIAGRA [Suspect]
     Indication: ERECTILE DYSFUNCTION
     Dosage: UNK
     Dates: start: 201305
  2. MOBIC [Concomitant]
     Indication: OSTEOARTHRITIS
     Dosage: UNK,DAILY
  3. AMBIEN [Concomitant]
     Indication: SLEEP DISORDER
     Dosage: UNK, DAILY

REACTIONS (3)
  - Spinal cord compression [Unknown]
  - Back pain [Unknown]
  - Impaired work ability [Unknown]
